FAERS Safety Report 9581479 (Version 4)
Quarter: 2014Q1

REPORT INFORMATION
  Report Type: Spontaneous
  Country: GB (occurrence: GB)
  Receive Date: 20131002
  Receipt Date: 20140109
  Transmission Date: 20141002
  Serious: Yes (Death, Hospitalization, Other)
  Sender: FDA-Public Use
  Company Number: PHFR2013GB005512

PATIENT
  Age: 48 Year
  Sex: Male

DRUGS (12)
  1. CLOZARIL [Suspect]
     Indication: SCHIZOPHRENIA
     Dosage: UNK
     Route: 048
     Dates: start: 20111102
  2. CLOZARIL [Suspect]
     Dosage: 375 MG, UNK
     Route: 048
  3. FILGRASTIM [Concomitant]
     Dosage: 300 MG, TID
     Route: 058
  4. LAMOTAX [Concomitant]
     Dosage: 100 MG, UNK
     Route: 048
  5. HALOPERIDOL [Concomitant]
     Dosage: 2 G, UNK
     Route: 048
  6. FLUCLOXACILLIN [Concomitant]
     Dosage: 2 G, UNK
     Route: 048
  7. SUFENTANIL [Concomitant]
     Dosage: 5 MG, UNK
     Route: 048
  8. LANSOPRAZOLE [Concomitant]
     Dosage: 30 MG, UNK
     Route: 048
  9. HYOSCINE BUTYLBROMIDE [Concomitant]
     Dosage: UNK UKN, UNK
  10. LEVOTHYROXINE [Concomitant]
     Dosage: 17000 IU, UNK
     Route: 058
  11. FERROUS FUMARATE [Concomitant]
     Dosage: 210 MG, UNK
     Route: 048
  12. TINZAPARIN [Concomitant]
     Indication: DEEP VEIN THROMBOSIS
     Dosage: UNK

REACTIONS (10)
  - Death [Fatal]
  - Cerebrovascular accident [Fatal]
  - Haemorrhage intracranial [Fatal]
  - Hepatic cancer [Fatal]
  - Circulatory collapse [Unknown]
  - Cataract [Not Recovered/Not Resolved]
  - Hepatitis C [Not Recovered/Not Resolved]
  - Deep vein thrombosis [Not Recovered/Not Resolved]
  - Platelet count decreased [Not Recovered/Not Resolved]
  - White blood cell count decreased [Recovered/Resolved]
